FAERS Safety Report 8021207 (Version 5)
Quarter: 2013Q3

REPORT INFORMATION
  Report Type: Spontaneous
  Country: US (occurrence: US)
  Receive Date: 20110705
  Receipt Date: 20130812
  Transmission Date: 20140515
  Serious: Yes (Other)
  Sender: FDA-Public Use
  Company Number: US-ROCHE-786688

PATIENT
  Age: 52 Year
  Sex: Female
  Weight: 55.84 kg

DRUGS (1)
  1. ACCUTANE [Suspect]
     Indication: ACNE
     Route: 065
     Dates: start: 199612, end: 19970430

REACTIONS (18)
  - Colitis [Not Recovered/Not Resolved]
  - Irritable bowel syndrome [Unknown]
  - Depression [Not Recovered/Not Resolved]
  - Injury [Unknown]
  - Crohn^s disease [Unknown]
  - Inflammatory bowel disease [Unknown]
  - Rectal polyp [Unknown]
  - Dry skin [Unknown]
  - Eye discharge [Unknown]
  - Lip dry [Unknown]
  - Dry eye [Unknown]
  - Joint stiffness [Unknown]
  - Pruritus [Unknown]
  - Arthralgia [Unknown]
  - Nasal dryness [Unknown]
  - Acne [Unknown]
  - Blood cholesterol increased [Unknown]
  - Blood triglycerides increased [Unknown]
